FAERS Safety Report 10559931 (Version 2)
Quarter: 2014Q4

REPORT INFORMATION
  Report Type: Spontaneous
  Country: US (occurrence: None)
  Receive Date: 20141030
  Receipt Date: 20141114
  Transmission Date: 20150529
  Serious: No
  Sender: FDA-Public Use
  Company Number: US-H14001-14-01268

PATIENT
  Age: 54 Year

DRUGS (5)
  1. PREDNISONE. [Suspect]
     Active Substance: PREDNISONE
     Indication: CHRONIC LYMPHOCYTIC LEUKAEMIA
     Dosage: 100 (100 ,1 IN 21 D) (NOT OTHERWISE SPECIFIED)
     Route: 042
     Dates: start: 20110706, end: 20111027
  2. CYTOXAN [Suspect]
     Active Substance: CYCLOPHOSPHAMIDE
     Indication: CHRONIC LYMPHOCYTIC LEUKAEMIA
     Dosage: 1500 (1500 ,1 IN 21 D) (NOT OTHERWISE SPECIFIED)
     Route: 042
     Dates: start: 20110706, end: 20111027
  3. RITUXAN [Suspect]
     Active Substance: RITUXIMAB
     Indication: CHRONIC LYMPHOCYTIC LEUKAEMIA
     Dosage: 375 (375 ,1 IN 21 D) (NOT OTHERWISE SPECIFIED)
     Route: 042
     Dates: start: 20110706, end: 20111027
  4. ADRIAMYCIN [Suspect]
     Active Substance: DOXORUBICIN HYDROCHLORIDE
     Indication: CHRONIC LYMPHOCYTIC LEUKAEMIA
     Dosage: 120 (120 ,1 IN 21 D) (NOT OTHERWISE SPECIFIED)
     Route: 042
     Dates: start: 20110706, end: 20111027
  5. VINCRISTINE (VINCRISTINE) (UNKNOWN) (VINCRISTINE) [Suspect]
     Active Substance: VINCRISTINE
     Indication: CHRONIC LYMPHOCYTIC LEUKAEMIA
     Dosage: 2 (2 ,1 IN 21 D) (NOT OTHERWISE SPECIFIED)
     Route: 042
     Dates: start: 20110706, end: 20111027

REACTIONS (2)
  - Tumour lysis syndrome [None]
  - Tumour flare [None]

NARRATIVE: CASE EVENT DATE: 20110912
